FAERS Safety Report 6688530-3 (Version None)
Quarter: 2010Q2

REPORT INFORMATION
  Report Type: 
  Country: None (occurrence: None)
  Receive Date: 20100420
  Receipt Date: 20100413
  Transmission Date: 20101027
  Serious: Yes (Other)
  Sender: FDA-Public Use
  Company Number: DE-SANOFI-AVENTIS-2009SA009989

PATIENT
  Age: 71 Year
  Sex: Female
  Weight: 80 kg

DRUGS (1)
  1. LANTUS [Suspect]
     Route: 058
     Dates: end: 20090701

REACTIONS (2)
  - BREAST CANCER RECURRENT [None]
  - METASTASES TO LIVER [None]
